FAERS Safety Report 4665068-6 (Version None)
Quarter: 2005Q2

REPORT INFORMATION
  Report Type: 
  Country: None (occurrence: None)
  Receive Date: 20050517
  Receipt Date: 20050428
  Transmission Date: 20051028
  Serious: Yes (Other)
  Sender: FDA-Public Use
  Company Number: GBS050417196

PATIENT
  Age: 43 Year
  Sex: Female

DRUGS (1)
  1. YENTREVE (DULOXETINE HYDROCHLORIDE) [Suspect]
     Dosage: 40 MG/2 DAY
     Dates: start: 20050214, end: 20050407

REACTIONS (4)
  - MYDRIASIS [None]
  - NAUSEA [None]
  - PSYCHOMOTOR HYPERACTIVITY [None]
  - TREMOR [None]
